FAERS Safety Report 15292375 (Version 1)
Quarter: 2018Q3

REPORT INFORMATION
  Report Type: Spontaneous
  Country: NL (occurrence: NL)
  Receive Date: 20180818
  Receipt Date: 20180818
  Transmission Date: 20181010
  Serious: Yes (Other)
  Sender: FDA-Public Use
  Company Number: NL-AUROBINDO-AUR-APL-2018-042477

PATIENT
  Age: 26 Year
  Sex: Male
  Weight: 79 kg

DRUGS (8)
  1. ESCITALOPRAM [Interacting]
     Active Substance: ESCITALOPRAM OXALATE
     Indication: DEPRESSION
     Dosage: 1 KEER PER DAG 1 TABLET
     Route: 050
     Dates: start: 20180713
  2. SUMATRIPTAN TABLETS 50 MG [Suspect]
     Active Substance: SUMATRIPTAN SUCCINATE
     Indication: MIGRAINE
     Dosage: BIJ MIGRAINE 1 TABLET, HERHAAL ZO NODIG 2 KEER PER DAG, WACHT MEER DAN 2 UUR NA DE VORIGE TABLET.
     Route: 050
     Dates: start: 20160330
  3. LOPERAMIDE [Concomitant]
     Active Substance: LOPERAMIDE
     Dosage: ZO NODIG 6 KEER PER DAG 1 CAPSULE
     Dates: start: 20140909
  4. IMODIUM [Concomitant]
     Active Substance: LOPERAMIDE HYDROCHLORIDE
     Dosage: 1DD1
  5. IMODIUM [Concomitant]
     Active Substance: LOPERAMIDE HYDROCHLORIDE
     Dosage: 1DD1
  6. COLESTYRAMINE [Concomitant]
     Active Substance: CHOLESTYRAMINE
     Dosage: 2DD1
     Dates: start: 20170125
  7. OXAZEPAM. [Concomitant]
     Active Substance: OXAZEPAM
     Dosage: ZO NODIG 1 KEER PER DAG 1 TABLET
     Dates: start: 20180713
  8. PSYLLIUMVEZELS [Concomitant]
     Dosage: 2 KEER PER DAG ZO NODIG 1 ZAKJE
     Dates: start: 20140711

REACTIONS (8)
  - Dyskinesia [Recovered/Resolved]
  - Muscle tightness [Recovered/Resolved]
  - Musculoskeletal stiffness [Recovered/Resolved]
  - Hyperhidrosis [Recovered/Resolved]
  - Drug interaction [Recovered/Resolved]
  - Myalgia [Recovered/Resolved]
  - Serotonin syndrome [Recovered/Resolved]
  - Anxiety [Recovered/Resolved]

NARRATIVE: CASE EVENT DATE: 20180719
